FAERS Safety Report 5488390-2 (Version None)
Quarter: 2007Q4

REPORT INFORMATION
  Report Type: 
  Country: None (occurrence: None)
  Receive Date: 20071017
  Receipt Date: 20071011
  Transmission Date: 20080405
  Serious: Yes (Life-Threatening, Hospitalization)
  Sender: FDA-Public Use
  Company Number: DE-MERCK-0709DEU00787

PATIENT
  Age: 67 Year
  Sex: Female

DRUGS (22)
  1. VYTORIN [Suspect]
     Indication: HYPERLIPIDAEMIA
     Route: 048
     Dates: start: 20051201, end: 20060101
  2. CLONIDINE HYDROCHLORIDE [Suspect]
     Indication: HYPERTENSION
     Route: 065
  3. INDAPAMIDE [Suspect]
     Indication: HYPERTENSION
     Route: 048
  4. HYDROCHLOROTHIAZIDE [Suspect]
     Indication: HYPERTENSION
     Route: 048
  5. HYDROCHLOROTHIAZIDE AND LOSARTAN POTASSIUM [Suspect]
     Indication: HYPERTENSION
     Route: 048
  6. ALLOPURINOL [Suspect]
     Route: 048
  7. MELOXICAM [Suspect]
     Indication: BACK PAIN
     Route: 065
     Dates: start: 20060102
  8. MELOXICAM [Suspect]
     Indication: ABDOMINAL PAIN LOWER
     Route: 065
     Dates: start: 20060102
  9. ACETAMINOPHEN AND CODEINE PHOSPHATE [Suspect]
     Indication: BACK PAIN
     Route: 048
     Dates: start: 20060102
  10. ACETAMINOPHEN AND CODEINE PHOSPHATE [Suspect]
     Indication: ABDOMINAL PAIN LOWER
     Route: 048
     Dates: start: 20060102
  11. PRIDINOL MESYLATE [Suspect]
     Indication: BACK PAIN
     Route: 048
     Dates: start: 20060102
  12. PRIDINOL MESYLATE [Suspect]
     Indication: ABDOMINAL PAIN LOWER
     Route: 048
     Dates: start: 20060102
  13. DIPYRONE [Suspect]
     Indication: BACK PAIN
     Route: 048
     Dates: start: 20060103
  14. DIPYRONE [Suspect]
     Indication: ABDOMINAL PAIN LOWER
     Route: 048
     Dates: start: 20060103
  15. ESOMEPRAZOLE MAGNESIUM [Suspect]
     Indication: GASTRIC DISORDER
     Route: 048
     Dates: start: 20060104
  16. ESOMEPRAZOLE MAGNESIUM [Suspect]
     Indication: NAUSEA
     Route: 048
     Dates: start: 20060104
  17. METOCLOPRAMIDE HYDROCHLORIDE [Suspect]
     Indication: GASTRIC DISORDER
     Route: 048
     Dates: start: 20060104
  18. METOCLOPRAMIDE HYDROCHLORIDE [Suspect]
     Indication: NAUSEA
     Route: 048
     Dates: start: 20060104
  19. [THERAPY UNSPECIFIED] [Suspect]
     Indication: GASTRIC DISORDER
     Route: 048
     Dates: start: 20060104
  20. [THERAPY UNSPECIFIED] [Suspect]
     Indication: NAUSEA
     Route: 048
     Dates: start: 20060104
  21. LERCANIDIPINE HYDROCHLORIDE [Concomitant]
     Route: 065
  22. NEBIVOLOL HYDROCHLORIDE [Concomitant]
     Route: 065

REACTIONS (3)
  - DRUG INTERACTION [None]
  - RENAL FAILURE ACUTE [None]
  - RHABDOMYOLYSIS [None]
